FAERS Safety Report 7309987-0 (Version None)
Quarter: 2011Q1

REPORT INFORMATION
  Report Type: 
  Country: None (occurrence: None)
  Receive Date: 20110224
  Receipt Date: 20100907
  Transmission Date: 20110831
  Serious: Yes (Other)
  Sender: FDA-Public Use
  Company Number: US-BAYER-200930016NA

PATIENT
  Sex: Female
  Weight: 60 kg

DRUGS (10)
  1. RHINOCORT [Concomitant]
     Indication: MULTIPLE ALLERGIES
     Dosage: UNK
     Dates: start: 20080101
  2. YASMIN [Suspect]
     Indication: ORAL CONTRACEPTION
     Dosage: UNK
     Dates: start: 20010901, end: 20040301
  3. NSAID'S [Concomitant]
     Dosage: UNK
     Dates: start: 20010101
  4. FIORICET [Concomitant]
     Dosage: UNK
     Dates: start: 20090101
  5. YASMIN [Suspect]
     Dosage: UNK
     Dates: end: 20080801
  6. ZYRTEC [Concomitant]
     Indication: MULTIPLE ALLERGIES
     Dosage: UNK
     Dates: start: 19990101
  7. ALBUTEROL [Concomitant]
     Dosage: UNK
     Dates: start: 20000101, end: 20070101
  8. YASMIN [Suspect]
     Dosage: UNK UNK, QD
     Dates: start: 20060701, end: 20070123
  9. UNCODEABLE ^UNCLASSIFIABLE^ [Concomitant]
     Dosage: UNK
     Dates: start: 20000101, end: 20070101
  10. VALTREX [Concomitant]
     Indication: HERPES SIMPLEX
     Dosage: UNK
     Dates: start: 20040101

REACTIONS (6)
  - CHOLELITHIASIS [None]
  - ABDOMINAL DISCOMFORT [None]
  - ABDOMINAL PAIN UPPER [None]
  - DIARRHOEA [None]
  - CHOLECYSTITIS CHRONIC [None]
  - PAIN [None]
